FAERS Safety Report 5889614-X (Version None)
Quarter: 2008Q3

REPORT INFORMATION
  Report Type: 
  Country: None (occurrence: None)
  Receive Date: 20080919
  Receipt Date: 20080918
  Transmission Date: 20090109
  Serious: Yes (Disabling)
  Sender: FDA-Public Use
  Company Number: B0516392A

PATIENT
  Age: 46 Year
  Sex: Female
  Weight: 49 kg

DRUGS (57)
  1. ALKERAN [Suspect]
     Indication: ALLOGENIC BONE MARROW TRANSPLANTATION THERAPY
     Dosage: 130MG PER DAY
     Route: 042
     Dates: start: 20070312, end: 20070313
  2. DOXORUBICIN HYDROCHLORIDE [Suspect]
     Route: 042
  3. ENDOXAN [Suspect]
     Route: 042
  4. FLUDARA [Concomitant]
     Indication: ALLOGENIC BONE MARROW TRANSPLANTATION THERAPY
     Dosage: 36MG PER DAY
     Dates: start: 20070309, end: 20070313
  5. NEUTROGIN [Concomitant]
     Dates: start: 20070320, end: 20070404
  6. SANDIMMUNE [Concomitant]
     Indication: IMMUNOSUPPRESSION
     Dosage: 150MG PER DAY
     Route: 042
     Dates: start: 20070314
  7. IODINE GLYCERIN COMPOUND [Concomitant]
     Route: 048
     Dates: start: 20070301, end: 20070301
  8. POSTERISAN [Concomitant]
     Route: 061
     Dates: start: 20070301, end: 20070315
  9. INDOMETHACIN [Concomitant]
     Route: 061
     Dates: start: 20070314, end: 20070314
  10. RHYTHMY [Concomitant]
     Dosage: 2MG PER DAY
     Route: 048
     Dates: start: 20070301, end: 20070309
  11. MYSLEE [Concomitant]
     Dosage: 10MG PER DAY
     Route: 048
     Dates: start: 20070301
  12. NEORAL [Concomitant]
     Route: 048
     Dates: start: 20070301
  13. PROGRAF [Concomitant]
     Dosage: 3.5MG TWICE PER DAY
     Route: 048
     Dates: start: 20070304, end: 20070304
  14. ISODINE GARGLE [Concomitant]
     Route: 065
     Dates: start: 20070305
  15. SODIUM BICARBONATE [Concomitant]
     Dates: start: 20070307
  16. LOMEFLOXACIN HYDROCHLORIDE [Concomitant]
     Route: 048
     Dates: start: 20070308, end: 20070406
  17. NYSTATIN [Concomitant]
     Route: 048
     Dates: start: 20070308
  18. ZOVIRAX [Concomitant]
     Route: 048
     Dates: start: 20070308
  19. ISCOTIN [Concomitant]
     Route: 048
     Dates: start: 20070308
  20. PURSENNID [Concomitant]
     Route: 048
     Dates: start: 20070312, end: 20070322
  21. MAGMITT [Concomitant]
     Dosage: 660MG TWICE PER DAY
     Route: 048
     Dates: start: 20070314, end: 20070321
  22. LOXONIN [Concomitant]
     Route: 048
     Dates: start: 20070314, end: 20070415
  23. SELBEX [Concomitant]
     Route: 048
     Dates: start: 20070314, end: 20070415
  24. URSO 250 [Concomitant]
     Route: 048
     Dates: start: 20070315
  25. SUCRALFATE [Concomitant]
     Route: 048
     Dates: start: 20070323, end: 20070407
  26. LIDOCAINE [Concomitant]
     Dosage: 100ML PER DAY
     Route: 048
     Dates: start: 20070323, end: 20070323
  27. AZUNOL [Concomitant]
     Route: 065
     Dates: start: 20070323
  28. ELASE [Concomitant]
     Route: 065
     Dates: start: 20070324
  29. LIDOCAINE [Concomitant]
     Route: 065
     Dates: start: 20070325, end: 20070408
  30. GENTACIN [Concomitant]
     Route: 061
     Dates: start: 20070328, end: 20070328
  31. DEQUALINIUM CHLORIDE [Concomitant]
     Route: 065
     Dates: start: 20070329, end: 20070411
  32. CRAVIT [Concomitant]
     Dosage: 2.5ML TWICE PER DAY
     Route: 061
     Dates: start: 20070329, end: 20070404
  33. INTEBAN [Concomitant]
     Route: 061
     Dates: start: 20070404, end: 20070415
  34. POLYMYXIN B SULFATE [Concomitant]
     Dosage: 100IU THREE TIMES PER DAY
     Route: 048
     Dates: start: 20070407, end: 20070420
  35. LOPEMIN [Concomitant]
     Dosage: 1MG PER DAY
     Route: 048
     Dates: start: 20070413, end: 20070413
  36. SOLDEM 3A [Concomitant]
     Dosage: 1000ML PER DAY
     Route: 042
     Dates: start: 20070307, end: 20070308
  37. ISOTONIC SODIUM CHLORIDE SOLUTION [Concomitant]
     Route: 042
     Dates: start: 20070309, end: 20070418
  38. KYTRIL [Concomitant]
     Route: 042
     Dates: start: 20070309, end: 20070313
  39. ISOTONIC SODIUM CHLORIDE SOLUTION [Concomitant]
     Route: 042
     Dates: start: 20070309, end: 20070413
  40. UNKNOWN DRUG [Concomitant]
     Dosage: 500ML PER DAY
     Route: 042
     Dates: start: 20070309, end: 20070320
  41. AMINO ACID + VITAMIN [Concomitant]
     Dosage: 903ML PER DAY
     Route: 042
     Dates: start: 20070309, end: 20070418
  42. ELEMENMIC [Concomitant]
     Dosage: 2ML PER DAY
     Route: 042
     Dates: start: 20070309, end: 20070418
  43. PRIMPERAN INJ [Concomitant]
     Route: 042
     Dates: start: 20070309, end: 20070320
  44. AMINO ACID + VITAMIN [Concomitant]
     Dosage: 1003ML PER DAY
     Route: 042
     Dates: start: 20070314, end: 20070317
  45. ISOTONIC SODIUM CHLORIDE SOLUTION [Concomitant]
     Route: 042
     Dates: start: 20070314, end: 20070424
  46. MAXIPIME [Concomitant]
     Route: 042
     Dates: start: 20070314, end: 20070424
  47. SOLU-CORTEF [Concomitant]
     Route: 042
     Dates: start: 20070315, end: 20070416
  48. HAPTOGLOBIN [Concomitant]
     Dosage: 2000IU PER DAY
     Route: 042
     Dates: start: 20070315, end: 20070315
  49. ISOTONIC SODIUM CHLORIDE SOLUTION [Concomitant]
     Dosage: 20ML PER DAY
     Route: 042
     Dates: start: 20070316, end: 20070321
  50. METHOTREXATE [Concomitant]
     Route: 042
     Dates: start: 20070316, end: 20070321
  51. HEPARIN SODIUM [Concomitant]
     Route: 042
     Dates: start: 20070316, end: 20070426
  52. FUROSEMIDE [Concomitant]
     Route: 042
     Dates: start: 20070316, end: 20070407
  53. AMINO ACID + VITAMIN [Concomitant]
     Dosage: 1103ML PER DAY
     Route: 042
     Dates: start: 20070318, end: 20070404
  54. HEPARIN SODIUM [Concomitant]
     Dosage: 1000IU PER DAY
     Route: 042
     Dates: start: 20070321, end: 20070408
  55. MEROPEN [Concomitant]
     Route: 042
     Dates: start: 20070324, end: 20070409
  56. MEDIJECT K [Concomitant]
     Dosage: 20MEQ PER DAY
     Route: 042
     Dates: start: 20070402, end: 20070406
  57. IMMUNE GLOBULIN INTRAVENOUS (HUMAN) [Concomitant]
     Dosage: 5G PER DAY
     Route: 042
     Dates: start: 20070404, end: 20070404

REACTIONS (2)
  - CARDIAC FAILURE CONGESTIVE [None]
  - CARDIOMEGALY [None]
